FAERS Safety Report 6861504-5 (Version None)
Quarter: 2010Q3

REPORT INFORMATION
  Report Type: 
  Country: None (occurrence: None)
  Receive Date: 20100720
  Receipt Date: 20100720
  Transmission Date: 20110219
  Serious: No
  Sender: FDA-Public Use
  Company Number: None

PATIENT

DRUGS (2)
  1. DIOVAN [Suspect]
     Indication: HYPERTENSION
     Dosage: ONE TABLET QD PO
     Route: 048
     Dates: start: 19970315, end: 20070820
  2. EXFORGE [Suspect]
     Indication: HYPERTENSION
     Dosage: ONE TABLET QD PO
     Route: 048
     Dates: start: 20070820, end: 20100716

REACTIONS (1)
  - NEOPLASM MALIGNANT [None]
